FAERS Safety Report 10660855 (Version 1)
Quarter: 2014Q4

REPORT INFORMATION
  Report Type: Other
  Country: FR (occurrence: FR)
  Receive Date: 20141218
  Receipt Date: 20141218
  Transmission Date: 20150529
  Serious: Yes (Hospitalization)
  Sender: FDA-Public Use
  Company Number: FR-SUN PHARMACEUTICAL INDUSTRIES LTD-2014SUN02849

PATIENT
  Age: 78 Year
  Sex: Female

DRUGS (3)
  1. TEMOZOLOMIDE CAPSULES 100MG [Suspect]
     Active Substance: TEMOZOLOMIDE
     Indication: CENTRAL NERVOUS SYSTEM LYMPHOMA
     Dosage: 150 MG/M2, UNK
     Route: 048
     Dates: start: 20141016, end: 20141020
  2. METHOTREXATE [Suspect]
     Active Substance: METHOTREXATE
     Indication: CENTRAL NERVOUS SYSTEM LYMPHOMA
     Dosage: 3 MG/M2, UNK
     Route: 065
     Dates: start: 20141016
  3. METHOTREXATE [Suspect]
     Active Substance: METHOTREXATE
     Dosage: 3 MG/M2, UNK
     Route: 065
     Dates: start: 20141103

REACTIONS (2)
  - Hepatocellular injury [Recovering/Resolving]
  - Cholestasis [Recovering/Resolving]

NARRATIVE: CASE EVENT DATE: 20141018
